FAERS Safety Report 4531119-2 (Version None)
Quarter: 2004Q4

REPORT INFORMATION
  Report Type: 
  Country: None (occurrence: None)
  Receive Date: 20041215
  Receipt Date: 20041207
  Transmission Date: 20050328
  Serious: Yes (Death, Hospitalization)
  Sender: FDA-Public Use
  Company Number: J081-002-001703

PATIENT
  Age: 78 Year
  Sex: Male
  Weight: 60 kg

DRUGS (8)
  1. ARICEPT [Suspect]
     Indication: DEMENTIA ALZHEIMER'S TYPE
     Dosage: 3 MG, 1 IN 1 D, ORAL; 5 MG, 1 IN 1 D, ORAL
     Route: 048
     Dates: start: 20040531, end: 20040611
  2. ARICEPT [Suspect]
     Indication: DEMENTIA ALZHEIMER'S TYPE
     Dosage: 3 MG, 1 IN 1 D, ORAL; 5 MG, 1 IN 1 D, ORAL
     Route: 048
     Dates: start: 20040612, end: 20040706
  3. ASPIRIN [Concomitant]
  4. AMLODIPINE BESYLATE [Concomitant]
  5. MAGNESIUM OXIDE (MAGNESIUM OXIDE) [Concomitant]
  6. ALLOPURINOL [Concomitant]
  7. DOXAZOSIN MESYLATE [Concomitant]
  8. PURSENNID (SENNA LEAF) [Concomitant]

REACTIONS (16)
  - BLOOD PRESSURE DECREASED [None]
  - DEHYDRATION [None]
  - DIALYSIS [None]
  - DISSEMINATED INTRAVASCULAR COAGULATION [None]
  - HYPERLIPIDAEMIA [None]
  - INFECTION [None]
  - MULTI-ORGAN FAILURE [None]
  - MUSCLE HAEMORRHAGE [None]
  - NEUROLEPTIC MALIGNANT SYNDROME [None]
  - PARALYSIS [None]
  - PERIPHERAL CIRCULATORY FAILURE [None]
  - PNEUMONIA ASPIRATION [None]
  - RENAL FAILURE ACUTE [None]
  - RHABDOMYOLYSIS [None]
  - SHOCK HAEMORRHAGIC [None]
  - SKIN NECROSIS [None]
